FAERS Safety Report 7553866-0 (Version None)
Quarter: 2011Q2

REPORT INFORMATION
  Report Type: 
  Country: None (occurrence: None)
  Receive Date: 20110617
  Receipt Date: 20110616
  Transmission Date: 20111010
  Serious: Yes (Other)
  Sender: FDA-Public Use
  Company Number: JP-PFIZER INC-2011132264

PATIENT
  Age: 66 Year
  Sex: Female

DRUGS (1)
  1. CELECOXIB [Suspect]
     Dosage: 100 MG, UNK
     Route: 048
     Dates: start: 20110201, end: 20110518

REACTIONS (1)
  - ENDOSCOPY LARGE BOWEL ABNORMAL [None]
